FAERS Safety Report 7375678-3 (Version None)
Quarter: 2011Q1

REPORT INFORMATION
  Report Type: 
  Country: None (occurrence: None)
  Receive Date: 20110325
  Receipt Date: 20110318
  Transmission Date: 20110831
  Serious: Yes (Hospitalization)
  Sender: FDA-Public Use
  Company Number: US-JNJFOC-20110308473

PATIENT
  Sex: Female

DRUGS (3)
  1. LEVAQUIN [Suspect]
     Indication: STAPHYLOCOCCAL INFECTION
     Route: 065
  2. VANCOMYCIN [Suspect]
     Indication: STAPHYLOCOCCAL INFECTION
     Route: 065
  3. DAPTOMYCIN [Suspect]
     Indication: STAPHYLOCOCCAL INFECTION
     Route: 065

REACTIONS (8)
  - PAIN [None]
  - THORACIC OUTLET SYNDROME [None]
  - NERVE INJURY [None]
  - RASH PRURITIC [None]
  - OEDEMA PERIPHERAL [None]
  - STEVENS-JOHNSON SYNDROME [None]
  - DRUG HYPERSENSITIVITY [None]
  - DEPRESSION [None]
